FAERS Safety Report 24004996 (Version 1)
Quarter: 2024Q2

REPORT INFORMATION
  Report Type: Spontaneous
  Country: US (occurrence: US)
  Receive Date: 20240624
  Receipt Date: 20240624
  Transmission Date: 20240716
  Serious: Yes (Life-Threatening, Hospitalization, Other)
  Sender: FDA-Public Use
  Company Number: US-AMGEN-USASP2024121062

PATIENT
  Age: 30 Year
  Sex: Female
  Weight: 42 kg

DRUGS (6)
  1. PREDNISONE [Suspect]
     Active Substance: PREDNISONE
     Indication: Sarcoidosis
     Dosage: 10 MILLIGRAM, QD
     Route: 065
  2. PREDNISONE [Suspect]
     Active Substance: PREDNISONE
     Indication: Blau syndrome
  3. UPADACITINIB [Concomitant]
     Active Substance: UPADACITINIB
     Indication: Sarcoidosis
     Dosage: UNK
     Route: 065
  4. UPADACITINIB [Concomitant]
     Active Substance: UPADACITINIB
     Indication: Blau syndrome
  5. METHOTREXATE [Concomitant]
     Active Substance: METHOTREXATE
     Indication: Sarcoidosis
     Dosage: UNK
     Route: 065
  6. METHOTREXATE [Concomitant]
     Active Substance: METHOTREXATE
     Indication: Blau syndrome

REACTIONS (3)
  - Pneumocystis jirovecii pneumonia [Unknown]
  - Acute respiratory distress syndrome [Unknown]
  - Pulmonary oedema [Unknown]
